FAERS Safety Report 11694347 (Version 1)
Quarter: 2015Q4

REPORT INFORMATION
  Report Type: Report from Study
  Country: JP (occurrence: JP)
  Receive Date: 20151103
  Receipt Date: 20151103
  Transmission Date: 20160304
  Serious: Yes (Disabling)
  Sender: FDA-Public Use
  Company Number: JP-JNJFOC-20151024459

PATIENT
  Age: 82 Year
  Sex: Male
  Weight: 41 kg

DRUGS (4)
  1. PREDNISOLONE. [Concomitant]
     Active Substance: PREDNISOLONE
     Indication: PROSTATE CANCER
     Route: 048
     Dates: start: 20150703
  2. ZYTIGA [Suspect]
     Active Substance: ABIRATERONE ACETATE
     Indication: PROSTATE CANCER
     Route: 048
     Dates: start: 20150703, end: 20151027
  3. LYRICA [Suspect]
     Active Substance: PREGABALIN
     Indication: PROSTATE CANCER
     Route: 048
     Dates: start: 20150206, end: 20151027
  4. METHYCOBAL [Suspect]
     Active Substance: METHYLCOBALAMIN
     Indication: PROSTATE CANCER
     Route: 048
     Dates: start: 20150414, end: 20151027

REACTIONS (1)
  - Drug eruption [Not Recovered/Not Resolved]

NARRATIVE: CASE EVENT DATE: 20151021
